FAERS Safety Report 8158540-8 (Version None)
Quarter: 2012Q1

REPORT INFORMATION
  Report Type: 
  Country: None (occurrence: None)
  Receive Date: 20120223
  Receipt Date: 20120214
  Transmission Date: 20120608
  Serious: Yes (Disabling, Other)
  Sender: FDA-Public Use
  Company Number: US-JNJFOC-20120109920

PATIENT
  Sex: Female
  Weight: 95.71 kg

DRUGS (5)
  1. STELARA [Suspect]
     Indication: PSORIASIS
     Dosage: ONE DOSE
     Route: 058
     Dates: start: 20120106, end: 20120106
  2. IBUPROFEN [Concomitant]
  3. VITAMIN D [Concomitant]
  4. CLOBEX [Concomitant]
  5. XANAX [Concomitant]

REACTIONS (3)
  - RASH PRURITIC [None]
  - MYALGIA [None]
  - MYOSITIS [None]
